FAERS Safety Report 8973901 (Version 2)
Quarter: 2013Q1

REPORT INFORMATION
  Report Type: Spontaneous
  Country: JP (occurrence: JP)
  Receive Date: 20121218
  Receipt Date: 20130123
  Transmission Date: 20140127
  Serious: Yes (Hospitalization)
  Sender: FDA-Public Use
  Company Number: JP-GLAXOSMITHKLINE-B0846820A

PATIENT
  Age: 17 Year
  Sex: Male
  Weight: 58 kg

DRUGS (5)
  1. LAMICTAL [Suspect]
     Indication: EPILEPSY
     Dosage: 25MG ALTERNATE DAYS
     Route: 048
     Dates: start: 20120926, end: 20121021
  2. LAMICTAL [Suspect]
     Indication: EPILEPSY
     Dosage: 25MG TWICE PER DAY
     Route: 048
     Dates: start: 20121022, end: 20121116
  3. DEPAKENE [Suspect]
     Indication: EPILEPSY
     Dosage: 600MG TWICE PER DAY
     Route: 048
     Dates: start: 2007, end: 20121116
  4. E KEPPRA [Suspect]
     Indication: EPILEPSY
     Dosage: 1000MG TWICE PER DAY
     Route: 048
     Dates: start: 2011, end: 20121116
  5. EXCEGRAN [Suspect]
     Indication: EPILEPSY
     Dosage: 100MG TWICE PER DAY
     Route: 048
     Dates: start: 2008, end: 20121116

REACTIONS (6)
  - Toxic skin eruption [Unknown]
  - Rash [Recovering/Resolving]
  - Stomatitis [Recovered/Resolved]
  - Aspartate aminotransferase increased [Unknown]
  - Alanine aminotransferase increased [Unknown]
  - Serum amyloid A protein increased [Unknown]
